FAERS Safety Report 8217612-X (Version None)
Quarter: 2012Q1

REPORT INFORMATION
  Report Type: 
  Country: None (occurrence: None)
  Receive Date: 20120319
  Receipt Date: 20120319
  Transmission Date: 20120608
  Serious: Yes (Other)
  Sender: FDA-Public Use
  Company Number: None

PATIENT
  Age: 53 Year
  Sex: Female
  Weight: 66.678 kg

DRUGS (1)
  1. LITHIUM CARBONATE [Suspect]

REACTIONS (5)
  - DYSARTHRIA [None]
  - SPEECH DISORDER [None]
  - TREMOR [None]
  - INSOMNIA [None]
  - EMOTIONAL DISORDER [None]
